FAERS Safety Report 4548320-4 (Version None)
Quarter: 2005Q1

REPORT INFORMATION
  Report Type: 
  Country: None (occurrence: None)
  Receive Date: 20050110
  Receipt Date: 20041118
  Transmission Date: 20050727
  Serious: Yes (Life-Threatening, Hospitalization, Disabling)
  Sender: FDA-Public Use
  Company Number: US-MERCK-0411USA03212

PATIENT
  Age: 46 Year
  Sex: Female

DRUGS (3)
  1. VIOXX [Suspect]
     Indication: OSTEOARTHRITIS
     Route: 048
     Dates: start: 20010101, end: 20020601
  2. VIOXX [Suspect]
     Route: 048
  3. NORVASC [Concomitant]
     Route: 065

REACTIONS (11)
  - ADVERSE EVENT [None]
  - AORTIC STENOSIS [None]
  - ASTHMA [None]
  - CARDIAC DISORDER [None]
  - CARDIAC FAILURE CONGESTIVE [None]
  - CHEST PAIN [None]
  - HYPERTENSION [None]
  - IRON DEFICIENCY ANAEMIA [None]
  - MITRAL VALVE INCOMPETENCE [None]
  - PERICARDIAL EFFUSION [None]
  - SYNCOPE [None]
